FAERS Safety Report 16357492 (Version 3)
Quarter: 2019Q4

REPORT INFORMATION
  Report Type: Report from Study
  Country: CA (occurrence: CA)
  Receive Date: 20190527
  Receipt Date: 20191128
  Transmission Date: 20200122
  Serious: Yes (Hospitalization, Other)
  Sender: FDA-Public Use
  Company Number: CA-ROCHE-2195450

PATIENT
  Age: 89 Year
  Sex: Male

DRUGS (28)
  1. ESBRIET [Suspect]
     Active Substance: PIRFENIDONE
     Dosage: 8 CAPSULES
     Route: 048
     Dates: start: 201910, end: 2019
  2. ESBRIET [Suspect]
     Active Substance: PIRFENIDONE
     Dosage: ONGOING- YES
     Route: 048
     Dates: start: 20181006, end: 20190307
  3. ESBRIET [Suspect]
     Active Substance: PIRFENIDONE
     Dosage: 7 CAPSULES EVERY DAY.
     Route: 048
     Dates: start: 2019
  4. ESBRIET [Suspect]
     Active Substance: PIRFENIDONE
     Indication: IDIOPATHIC PULMONARY FIBROSIS
     Dosage: ONGOING- YES
     Route: 048
     Dates: start: 20180922, end: 20180928
  5. ESBRIET [Suspect]
     Active Substance: PIRFENIDONE
     Dosage: ONGOING- YES
     Route: 048
     Dates: start: 20190308, end: 20190820
  6. ESBRIET [Suspect]
     Active Substance: PIRFENIDONE
     Dosage: GRADUALLY INCREASING WITH ONE CAPSULE AT A TIME UNTIL REACHING 2403 MG DAILY
     Route: 048
     Dates: start: 20190821, end: 20190829
  7. ESBRIET [Suspect]
     Active Substance: PIRFENIDONE
     Dosage: GRADUALLY INCREASING WITH ONE CAPSULE AT A TIME UNTIL REACHING 2403 MG DAILY
     Route: 048
     Dates: start: 20190830, end: 20190912
  8. ESBRIET [Suspect]
     Active Substance: PIRFENIDONE
     Route: 048
     Dates: start: 2019, end: 201908
  9. ESBRIET [Suspect]
     Active Substance: PIRFENIDONE
     Dosage: ONGOING.
     Route: 048
     Dates: start: 20190101
  10. ESBRIET [Suspect]
     Active Substance: PIRFENIDONE
     Dosage: ONGOING- YES
     Route: 048
     Dates: start: 20180929, end: 20181005
  11. ESBRIET [Suspect]
     Active Substance: PIRFENIDONE
     Dosage: SLOW TITRATION; WILL INCREASE ONE CAPSULE SLOWLY
     Route: 048
     Dates: start: 20191001, end: 201910
  12. ESBRIET [Suspect]
     Active Substance: PIRFENIDONE
     Route: 048
     Dates: start: 2019
  13. ZANTAC [Concomitant]
     Active Substance: RANITIDINE HYDROCHLORIDE
  14. PANTOPRAZOLE [Concomitant]
     Active Substance: PANTOPRAZOLE
     Dosage: ONGOING ; PREVIOUSLY ZANTAC 150 MG TWICE DAILY AND SWITCHED FOR PANTOPRAZOLE 2019)
     Route: 065
     Dates: start: 2019
  15. ESBRIET [Suspect]
     Active Substance: PIRFENIDONE
     Route: 048
     Dates: start: 2018
  16. ZOLADEX [Concomitant]
     Active Substance: GOSERELIN ACETATE
  17. SALBUTAMOL [Concomitant]
     Active Substance: ALBUTEROL
  18. ESBRIET [Suspect]
     Active Substance: PIRFENIDONE
     Dosage: SLOW TITRATION; INCREASE BY ONE CAPSULE
     Route: 048
     Dates: start: 201910, end: 201910
  19. ESBRIET [Suspect]
     Active Substance: PIRFENIDONE
     Dosage: 8 CAPSULES
     Route: 048
     Dates: start: 2019, end: 2019
  20. ESBRIET [Suspect]
     Active Substance: PIRFENIDONE
     Dosage: 9 CAPSULES PER DAY.
     Route: 048
     Dates: start: 20191117
  21. ATROVENT [Concomitant]
     Active Substance: IPRATROPIUM BROMIDE
  22. ESBRIET [Suspect]
     Active Substance: PIRFENIDONE
     Dosage: TOOK ONLY 1 CAPSULE
     Route: 048
     Dates: start: 20190925, end: 20190925
  23. METOPROLOL. [Concomitant]
     Active Substance: METOPROLOL
     Route: 065
  24. ACETYLSALICYLIC ACID [Concomitant]
     Active Substance: ASPIRIN
     Route: 048
  25. IRON FERROUS GLUCONATE [Concomitant]
     Active Substance: FERROUS GLUCONATE
  26. ESBRIET [Suspect]
     Active Substance: PIRFENIDONE
     Route: 048
     Dates: start: 2018
  27. ESBRIET [Suspect]
     Active Substance: PIRFENIDONE
     Dosage: 7 CAPSULES PER DAY.
     Route: 048
     Dates: start: 201911, end: 20191116
  28. RESTORALAX [Concomitant]
     Active Substance: POLYETHYLENE GLYCOL 3350

REACTIONS (12)
  - Pneumonia [Recovered/Resolved]
  - Cough [Recovered/Resolved]
  - Body temperature increased [Unknown]
  - Fall [Unknown]
  - Fatigue [Not Recovered/Not Resolved]
  - Cerebral haemorrhage [Unknown]
  - Rhinorrhoea [Recovered/Resolved]
  - Productive cough [Recovered/Resolved]
  - Limb injury [Unknown]
  - Gastrointestinal disorder [Unknown]
  - Balance disorder [Unknown]
  - Lower respiratory tract infection [Unknown]

NARRATIVE: CASE EVENT DATE: 20180922
